FAERS Safety Report 9834097 (Version 1)
Quarter: 2014Q1

REPORT INFORMATION
  Report Type: Spontaneous
  Country: US (occurrence: US)
  Receive Date: 20140122
  Receipt Date: 20140122
  Transmission Date: 20141002
  Serious: Yes (Hospitalization, Other)
  Sender: FDA-Public Use
  Company Number: US-BAYER-2014-009422

PATIENT
  Age: 31 Year
  Sex: Female

DRUGS (25)
  1. YASMIN [Suspect]
     Route: 048
  2. CLONAZEPAM [Concomitant]
     Dosage: 2 MG, UNK
     Dates: start: 20120323, end: 20120525
  3. HYDROCODONE/PARACETAMOL [Concomitant]
     Dosage: UNK
     Dates: start: 20120526
  4. SULFAMETHOXAZOLE [Concomitant]
     Dosage: UNK
     Dates: start: 20120327, end: 20120507
  5. TRAMADOL HYDROCHLORIDE [Concomitant]
     Dosage: 50 MG, UNK
     Dates: start: 20120327, end: 20120525
  6. LEVOTHYROXINE [Concomitant]
     Dosage: 175 MG, UNK
     Dates: start: 20120327, end: 20120501
  7. LEVOTHYROXINE [Concomitant]
     Dosage: 50 MCG/24HR, UNK
  8. METFORMIN HYDROCHLORIDE [Concomitant]
     Dosage: UNK
     Dates: start: 20120327, end: 20120507
  9. NAPROXEN [Concomitant]
     Dosage: 500 MG, UNK
     Dates: start: 20120507
  10. NEURONTIN [Concomitant]
     Dosage: 300 MG, UNK
     Dates: start: 20120525
  11. CELEBREX [Concomitant]
  12. ALDACTONE A [Concomitant]
  13. BENICAR [Concomitant]
  14. TRILIPIX [Concomitant]
  15. NEXIUM [Concomitant]
  16. SYNTHROID [Concomitant]
  17. HYDROCODONE [Concomitant]
  18. METFORMIN [Concomitant]
     Dosage: 500 MG, BID
  19. KLONOPIN [Concomitant]
  20. NITROGLYCERIN [Concomitant]
     Route: 042
  21. PLAVIX [Concomitant]
     Dosage: 75 MG, QD
  22. LOPRESSOR [Concomitant]
     Dosage: 50 MG, QD
  23. LISINOPRIL [Concomitant]
     Dosage: 20 MG, QD
  24. TRAMADOL [Concomitant]
  25. ENTERIC COATED ASPIRIN [Concomitant]
     Dosage: 325 MG, QD

REACTIONS (2)
  - Acute myocardial infarction [Recovering/Resolving]
  - Paradoxical embolism [Recovering/Resolving]
